FAERS Safety Report 15252439 (Version 2)
Quarter: 2018Q3

REPORT INFORMATION
  Report Type: Spontaneous
  Country: US (occurrence: US)
  Receive Date: 20180807
  Receipt Date: 20180821
  Transmission Date: 20181010
  Serious: No
  Sender: FDA-Public Use
  Company Number: PHEH2018US031540

PATIENT
  Age: 1 Year
  Sex: Female
  Weight: 12 kg

DRUGS (7)
  1. MULTIVITAMINS [Concomitant]
     Active Substance: VITAMINS
     Indication: SUPPLEMENTATION THERAPY
     Dosage: UNK UNK, QD
     Route: 048
     Dates: start: 20171001
  2. NYSTATIN. [Suspect]
     Active Substance: NYSTATIN
     Indication: FUNGAL SKIN INFECTION
     Dosage: UNK UNK, TID
     Route: 061
     Dates: start: 20180603, end: 20180603
  3. SODIUM FLUORIDE. [Concomitant]
     Active Substance: SODIUM FLUORIDE
     Indication: PRODUCT USED FOR UNKNOWN INDICATION
     Route: 065
  4. NYSTATIN. [Suspect]
     Active Substance: NYSTATIN
     Indication: DERMATITIS DIAPER
  5. NYSTATIN. [Suspect]
     Active Substance: NYSTATIN
     Indication: FUNGAL SKIN INFECTION
     Dosage: UNK UNK, TID
     Route: 061
     Dates: start: 201712, end: 201805
  6. NYSTATIN. [Suspect]
     Active Substance: NYSTATIN
     Indication: DERMATITIS DIAPER
     Dosage: UNK UNK, TID
     Route: 061
     Dates: start: 20180604, end: 20180617
  7. IRON [Concomitant]
     Active Substance: IRON
     Indication: PRODUCT USED FOR UNKNOWN INDICATION
     Route: 065

REACTIONS (7)
  - Urticaria [Recovered/Resolved]
  - Screaming [Unknown]
  - Dermatitis allergic [Recovered/Resolved]
  - Pruritus [Unknown]
  - Swelling [Unknown]
  - Erythema [Unknown]
  - Feeling hot [Unknown]

NARRATIVE: CASE EVENT DATE: 20180603
